FAERS Safety Report 20103178 (Version 3)
Quarter: 2022Q1

REPORT INFORMATION
  Report Type: Spontaneous
  Country: US (occurrence: US)
  Receive Date: 20211123
  Receipt Date: 20220210
  Transmission Date: 20220423
  Serious: Yes (Hospitalization)
  Sender: FDA-Public Use
  Company Number: US-COLLEGIUM PHARMACEUTICAL, INC.-2021CGM01173

PATIENT
  Age: 78 Year
  Sex: Female

DRUGS (7)
  1. XTAMPZA ER [Suspect]
     Active Substance: OXYCODONE
     Indication: Pain
     Dosage: 18 MG EVERY 4 HOURS
     Route: 048
     Dates: start: 20210623, end: 202111
  2. NORCO [Concomitant]
     Active Substance: ACETAMINOPHEN\HYDROCODONE BITARTRATE
     Dosage: 1 TABLETS, 1X/DAY AS NEEDED
     Route: 048
  3. DIAZEPAM [Concomitant]
     Active Substance: DIAZEPAM
     Dosage: UNK, AS NEEDED
  4. HYDROCODONE [Concomitant]
     Active Substance: HYDROCODONE
     Indication: Pain
  5. DULOXETINE [Concomitant]
     Active Substance: DULOXETINE
     Dosage: 30 MG, 1X/DAY
     Route: 048
     Dates: end: 20210622
  6. DULOXETINE [Concomitant]
     Active Substance: DULOXETINE
     Dosage: 20 MG, 2X/DAY
     Route: 048
     Dates: start: 20210623
  7. CYCLOBENZAPRINE [Concomitant]
     Active Substance: CYCLOBENZAPRINE
     Dosage: 5 MG, 2X/DAY (EVERY 12 HOURS) AS NEEDED
     Route: 048

REACTIONS (9)
  - Hallucination [Recovering/Resolving]
  - Gait disturbance [Recovering/Resolving]
  - Confusional state [Recovering/Resolving]
  - Amnesia [Recovering/Resolving]
  - Dizziness [Not Recovered/Not Resolved]
  - Tendon rupture [Not Recovered/Not Resolved]
  - Asthenia [Not Recovered/Not Resolved]
  - Drug ineffective [Recovered/Resolved]
  - Constipation [Recovered/Resolved]

NARRATIVE: CASE EVENT DATE: 20210623
